FAERS Safety Report 8418513-4 (Version None)
Quarter: 2012Q2

REPORT INFORMATION
  Report Type: 
  Country: None (occurrence: None)
  Receive Date: 20120607
  Receipt Date: 20120601
  Transmission Date: 20120825
  Serious: Yes (Hospitalization)
  Sender: FDA-Public Use
  Company Number: IT-SANOFI-AVENTIS-2012SA032596

PATIENT
  Age: 90 Year
  Sex: Female

DRUGS (3)
  1. BROMAZEPAM [Concomitant]
     Route: 065
  2. TRAMADOL HCL [Concomitant]
     Route: 065
  3. ZOLPIDEM [Suspect]
     Indication: INSOMNIA
     Route: 048
     Dates: start: 20120404, end: 20120504

REACTIONS (2)
  - PSYCHOMOTOR RETARDATION [None]
  - SYNCOPE [None]
